FAERS Safety Report 4742564-4 (Version None)
Quarter: 2005Q3

REPORT INFORMATION
  Report Type: 
  Country: None (occurrence: None)
  Receive Date: 20050811
  Receipt Date: 20050803
  Transmission Date: 20060218
  Serious: Yes (Death, Life-Threatening)
  Sender: FDA-Public Use
  Company Number: NO-JNJFOC-20050801041

PATIENT
  Sex: Female

DRUGS (18)
  1. REMICADE [Suspect]
     Route: 042
  2. REMICADE [Suspect]
     Route: 042
  3. REMICADE [Suspect]
     Route: 042
  4. REMICADE [Suspect]
     Indication: PYODERMA GANGRENOSUM
     Dosage: 2 INFUSIONS IN 14 DAYS.
     Route: 042
  5. ACETAMINOPHEN W/ PROPOXYPHENE HCL [Concomitant]
     Route: 048
  6. ACETAMINOPHEN W/ PROPOXYPHENE HCL [Concomitant]
     Indication: PAIN
     Route: 048
  7. PREDNISOLONE [Concomitant]
     Indication: PYODERMA GANGRENOSUM
     Route: 048
  8. FOSAMAX [Concomitant]
     Indication: PROPHYLAXIS
     Route: 048
  9. FOSAMAX [Concomitant]
     Indication: OSTEOPOROSIS
     Route: 048
  10. SEROXAT [Concomitant]
     Indication: DEPRESSION
     Route: 048
  11. AMARYL [Concomitant]
     Route: 048
  12. LOMUDAL NASAL [Concomitant]
     Indication: PYODERMA GANGRENOSUM
     Route: 065
  13. SANDIMMUNE [Concomitant]
     Route: 048
  14. SANDIMMUNE [Concomitant]
     Indication: PYODERMA GANGRENOSUM
     Route: 048
  15. CALCIGRAN FORTE [Concomitant]
     Route: 048
  16. CALCIGRAN FORTE [Concomitant]
     Route: 048
  17. CALCIGRAN FORTE [Concomitant]
     Indication: PROPHYLAXIS
     Route: 048
  18. CALCIGRAN FORTE [Concomitant]
     Indication: OSTEOPOROSIS
     Dosage: 1 DOSAGE FORM.
     Route: 048

REACTIONS (5)
  - DYSPNOEA [None]
  - MALAISE [None]
  - MYOCARDIAL INFARCTION [None]
  - PULMONARY EMBOLISM [None]
  - SYNCOPE [None]
